FAERS Safety Report 4800471-2 (Version None)
Quarter: 2005Q4

REPORT INFORMATION
  Report Type: 
  Country: None (occurrence: None)
  Receive Date: 20051017
  Receipt Date: 20050708
  Transmission Date: 20060501
  Serious: Yes (Death)
  Sender: FDA-Public Use
  Company Number: PHEH2005US07603

PATIENT
  Age: 82 Year
  Sex: Female

DRUGS (8)
  1. CLOZARIL [Suspect]
     Dosage: 75 MG, QD
     Route: 048
  2. ALLOPURINOL [Concomitant]
  3. CLEOCIN [Concomitant]
  4. DEPAKOTE [Concomitant]
  5. MIACALCIN [Concomitant]
  6. NEURONTIN [Concomitant]
  7. PROVENTIL [Concomitant]
  8. ROCEPHIN [Concomitant]

REACTIONS (2)
  - MYOCARDIAL INFARCTION [None]
  - PNEUMONIA [None]
